FAERS Safety Report 13428193 (Version 3)
Quarter: 2017Q2

REPORT INFORMATION
  Report Type: Spontaneous
  Country: US (occurrence: US)
  Receive Date: 20170411
  Receipt Date: 20170518
  Transmission Date: 20170830
  Serious: Yes (Other)
  Sender: FDA-Public Use
  Company Number: US-PFIZER INC-2017150144

PATIENT
  Age: 71 Year
  Sex: Female

DRUGS (2)
  1. IBRANCE [Suspect]
     Active Substance: PALBOCICLIB
     Dosage: 100 MG, UNK
     Dates: start: 201612, end: 201702
  2. IBRANCE [Suspect]
     Active Substance: PALBOCICLIB
     Dosage: 100 MG, CYCLIC (DAILY FOR 21 DAYS THEN 7 DAYS OFF)
     Route: 048
     Dates: start: 20161029, end: 20170321

REACTIONS (8)
  - Thrombosis [Unknown]
  - Cheilitis [Unknown]
  - Asthenia [Unknown]
  - Stomatitis [Unknown]
  - Alopecia [Unknown]
  - Diarrhoea [Unknown]
  - Epistaxis [Unknown]
  - Neoplasm progression [Unknown]
